FAERS Safety Report 9706553 (Version 2)
Quarter: 2013Q4

REPORT INFORMATION
  Report Type: Report from Study
  Country: US (occurrence: US)
  Receive Date: 20131125
  Receipt Date: 20131206
  Transmission Date: 20140711
  Serious: Yes (Hospitalization)
  Sender: FDA-Public Use
  Company Number: US-ROCHE-1305161

PATIENT
  Sex: Male

DRUGS (10)
  1. RITUXAN [Suspect]
     Indication: RHEUMATOID ARTHRITIS
     Route: 042
     Dates: start: 201304
  2. ASPIRIN [Concomitant]
     Route: 065
  3. ATORVASTATIN CALCIUM [Concomitant]
     Route: 065
  4. FISH OIL [Concomitant]
     Route: 065
  5. FLAXSEED OIL [Concomitant]
     Route: 065
  6. FOLIC ACID [Concomitant]
     Route: 065
  7. FORTEO [Concomitant]
     Route: 065
  8. METHOTREXATE [Concomitant]
     Route: 065
  9. OMEPRAZOLE [Concomitant]
     Route: 065
  10. VITAMIN B12 [Concomitant]
     Route: 065

REACTIONS (12)
  - Vertigo [Unknown]
  - Pain [Unknown]
  - Swelling [Unknown]
  - Arthralgia [Unknown]
  - Musculoskeletal stiffness [Recovered/Resolved]
  - Arthritis [Unknown]
  - Activities of daily living impaired [Unknown]
  - Back pain [Unknown]
  - Spinal disorder [Unknown]
  - Arthralgia [Unknown]
  - Joint swelling [Unknown]
  - Finger deformity [Unknown]
